FAERS Safety Report 7925107-3 (Version None)
Quarter: 2011Q4

REPORT INFORMATION
  Report Type: 
  Country: None (occurrence: None)
  Receive Date: 20111118
  Receipt Date: 20110401
  Transmission Date: 20120403
  Serious: No
  Sender: FDA-Public Use
  Company Number: US-AMGEN-USASP2011017497

PATIENT
  Age: 57 Year
  Sex: Female

DRUGS (9)
  1. BONIVA [Concomitant]
     Dosage: 3 MG, UNK
  2. ADVAIR DISKUS 100/50 [Concomitant]
  3. LEVOTHYROXINE SODIUM [Concomitant]
     Dosage: 0.75 MG, UNK
  4. LORTAB [Concomitant]
  5. COMBIVENT [Concomitant]
  6. FOLIC ACID [Concomitant]
     Dosage: 1 MG, UNK
  7. PROZAC [Concomitant]
     Dosage: 10 MG, UNK
  8. TRAMADOL HCL [Concomitant]
     Dosage: 50 MG, UNK
  9. ENBREL [Suspect]
     Indication: PRODUCT USED FOR UNKNOWN INDICATION
     Dosage: 50 MG, QWK

REACTIONS (2)
  - INJECTION SITE PRURITUS [None]
  - INJECTION SITE SWELLING [None]
